FAERS Safety Report 9842691 (Version 1)
Quarter: 2014Q1

REPORT INFORMATION
  Report Type: Spontaneous
  Country: FR (occurrence: FR)
  Receive Date: 20140124
  Receipt Date: 20140124
  Transmission Date: 20141002
  Serious: Yes (Hospitalization)
  Sender: FDA-Public Use
  Company Number: FR-PFIZER INC-2014018012

PATIENT
  Age: 62 Year
  Sex: Female

DRUGS (11)
  1. ZOLOFT [Suspect]
     Indication: DEPRESSION
     Dosage: 50 MG, 1X/DAY
     Route: 048
     Dates: start: 20131127, end: 20131209
  2. XANAX [Suspect]
     Indication: DEPRESSION
     Dosage: 0.5 MG, 3X/DAY AS NEEDED
     Route: 048
     Dates: start: 20131126, end: 20131211
  3. PHLOROGLUCINOL TRIMETHYLPHLOROGLUCINOL ARROW [Suspect]
     Indication: ABDOMINAL PAIN
     Dosage: UNK
     Route: 042
     Dates: start: 20131126, end: 20131128
  4. PHLOROGLUCINOL ARROW [Suspect]
     Indication: ABDOMINAL PAIN
     Dosage: 80 MG, UNK
     Route: 048
     Dates: start: 20131130, end: 20131205
  5. INEXIUM /01479302/ [Suspect]
     Dosage: 40 MG, DAILY
     Route: 042
     Dates: start: 20131127, end: 20131212
  6. INEXIUM /01479302/ [Suspect]
     Dosage: 40 MG, 2X/DAY
     Route: 048
     Dates: start: 20131213
  7. LOVENOX [Suspect]
     Dosage: 4000 IU, DAILY
     Route: 058
     Dates: start: 20131127, end: 20131204
  8. MIANSERINE ARROW [Suspect]
     Indication: DEPRESSION
     Dosage: 10 MG, DAILY
     Route: 048
     Dates: start: 20131128, end: 20131201
  9. MIANSERINE ARROW [Suspect]
     Dosage: 20 MG, DAILY
     Route: 048
     Dates: start: 20131202, end: 20131208
  10. MIANSERINE ARROW [Suspect]
     Dosage: 30 MG, DAILY
     Route: 048
     Dates: start: 20131209, end: 20131210
  11. GAVISCON [Concomitant]
     Dosage: UNK
     Route: 048
     Dates: start: 20131130, end: 20131212

REACTIONS (5)
  - Hepatocellular injury [Not Recovered/Not Resolved]
  - Dysphagia [Unknown]
  - Decreased appetite [Unknown]
  - Weight decreased [Unknown]
  - Atrophy [Unknown]
